FAERS Safety Report 25833814 (Version 1)
Quarter: 2025Q3

REPORT INFORMATION
  Report Type: Spontaneous
  Country: CN (occurrence: CN)
  Receive Date: 20250923
  Receipt Date: 20250923
  Transmission Date: 20251021
  Serious: Yes (Hospitalization, Other)
  Sender: GLAXOSMITHKLINE
  Company Number: CN-GLAXOSMITHKLINE INC-CN2025CHI116336

PATIENT
  Age: 48 Year
  Sex: Female
  Weight: 71.5 kg

DRUGS (4)
  1. BELIMUMAB [Suspect]
     Active Substance: BELIMUMAB
     Indication: Systemic lupus erythematosus
     Dosage: N600MG+0.9%NS 250ML IVGTT
  2. MYCOPHENOLATE MOFETIL [Suspect]
     Active Substance: MYCOPHENOLATE MOFETIL
     Indication: Systemic lupus erythematosus
     Dosage: 0.5 G, BID
  3. METHYLPREDNISOLONE [Suspect]
     Active Substance: METHYLPREDNISOLONE
     Indication: Systemic lupus erythematosus
     Dosage: 24 MG, QD
  4. SODIUM CHLORIDE [Concomitant]
     Active Substance: SODIUM CHLORIDE
     Indication: Medication dilution
     Dosage: 250 ML, MO, 0.9%NS 250ML IVGTT

REACTIONS (12)
  - Uterine leiomyoma [Unknown]
  - Pelvic mass [Unknown]
  - Hydrosalpinx [Unknown]
  - Salpingitis [Unknown]
  - Ovarian neoplasm [Unknown]
  - Fallopian tube abscess [Unknown]
  - Fallopian tube neoplasm [Unknown]
  - White blood cell count increased [Unknown]
  - Granulocyte count increased [Unknown]
  - Haemoglobin decreased [Unknown]
  - Procalcitonin increased [Unknown]
  - C-reactive protein increased [Unknown]

NARRATIVE: CASE EVENT DATE: 20250811
